FAERS Safety Report 8306762-5 (Version None)
Quarter: 2012Q2

REPORT INFORMATION
  Report Type: 
  Country: None (occurrence: None)
  Receive Date: 20120424
  Receipt Date: 20120418
  Transmission Date: 20120825
  Serious: No
  Sender: FDA-Public Use
  Company Number: US-PFIZER INC-2012096538

PATIENT
  Sex: Female
  Weight: 73.016 kg

DRUGS (5)
  1. LEVOXYL [Concomitant]
     Dosage: 0.5 MG, UNK
  2. LISINOPRIL [Concomitant]
     Indication: HYPERTENSION
     Dosage: 40 MG, UNK
  3. DETROL LA [Suspect]
     Indication: HYPERTONIC BLADDER
     Dosage: 4 MG, 1X/DAY
     Route: 048
     Dates: start: 20120417
  4. RISEDRONATE SODIUM [Concomitant]
     Dosage: UNK, WEEKLY
  5. AMLODIPINE [Concomitant]
     Indication: HYPERTENSION
     Dosage: 10 MG, UNK

REACTIONS (2)
  - BALANCE DISORDER [None]
  - CHEST DISCOMFORT [None]
